FAERS Safety Report 17252852 (Version 1)
Quarter: 2020Q1

REPORT INFORMATION
  Report Type: Spontaneous
  Country: CN (occurrence: CN)
  Receive Date: 20200109
  Receipt Date: 20200109
  Transmission Date: 20200409
  Serious: Yes (Other)
  Sender: FDA-Public Use
  Company Number: CN-BAXTER-2020BAX000207

PATIENT
  Age: 47 Year
  Sex: Female
  Weight: 50 kg

DRUGS (8)
  1. ENDOXAN [Suspect]
     Active Substance: CYCLOPHOSPHAMIDE
     Indication: METASTASES TO LYMPH NODES
  2. SODIUM CHLORIDE. [Suspect]
     Active Substance: SODIUM CHLORIDE
     Indication: MEDICATION DILUTION
     Dosage: CYCLOPHOSPHAMIDE INJECTION + SODIUM CHLORIDE INJECTION
     Route: 041
     Dates: start: 20191119, end: 20191119
  3. ENDOXAN [Suspect]
     Active Substance: CYCLOPHOSPHAMIDE
     Indication: INVASIVE DUCTAL BREAST CARCINOMA
  4. ENDOXAN [Suspect]
     Active Substance: CYCLOPHOSPHAMIDE
     Indication: METASTASES TO BONE
     Dosage: CYCLOPHOSPHAMIDE INJECTION + SODIUM CHLORIDE INJECTION
     Route: 041
     Dates: start: 20191119, end: 20191119
  5. PHARMORUBICIN [Suspect]
     Active Substance: EPIRUBICIN
     Indication: METASTASES TO LYMPH NODES
  6. SODIUM CHLORIDE. [Suspect]
     Active Substance: SODIUM CHLORIDE
     Dosage: PHARMORUBICIN INJECTION + SODIUM CHLORIDE INJECTION
     Route: 041
     Dates: start: 20191119, end: 20191119
  7. PHARMORUBICIN [Suspect]
     Active Substance: EPIRUBICIN
     Indication: METASTASES TO BONE
     Dosage: PHARMORUBICIN INJECTION + SODIUM CHLORIDE INJECTION
     Route: 041
     Dates: start: 20191119, end: 20191119
  8. PHARMORUBICIN [Suspect]
     Active Substance: EPIRUBICIN
     Indication: INVASIVE DUCTAL BREAST CARCINOMA

REACTIONS (3)
  - Anaemia [Recovering/Resolving]
  - Platelet count decreased [Recovering/Resolving]
  - Vaginal haemorrhage [Recovered/Resolved]

NARRATIVE: CASE EVENT DATE: 20191204
